FAERS Safety Report 9667533 (Version 2)
Quarter: 2013Q4

REPORT INFORMATION
  Report Type: Spontaneous
  Country: SE (occurrence: SE)
  Receive Date: 20131104
  Receipt Date: 20131104
  Transmission Date: 20140711
  Serious: Yes (Hospitalization)
  Sender: FDA-Public Use
  Company Number: PHHY2013SE117814

PATIENT
  Sex: Female

DRUGS (2)
  1. ACLASTA [Suspect]
     Indication: OSTEOPOROSIS
     Dosage: UNK
     Route: 042
     Dates: start: 20121112
  2. BISPHOSPHONATES [Concomitant]
     Dosage: UNK

REACTIONS (3)
  - Spinal column stenosis [Recovered/Resolved with Sequelae]
  - Pain [Recovered/Resolved with Sequelae]
  - Bone pain [Recovered/Resolved with Sequelae]
